FAERS Safety Report 5313982-0 (Version None)
Quarter: 2007Q2

REPORT INFORMATION
  Report Type: 
  Country: None (occurrence: None)
  Receive Date: 20070501
  Receipt Date: 20070420
  Transmission Date: 20071010
  Serious: Yes (Death, Other)
  Sender: FDA-Public Use
  Company Number: US-PFIZER INC-2006133997

PATIENT
  Sex: Female
  Weight: 58.1 kg

DRUGS (7)
  1. CELEBREX [Suspect]
     Indication: PAIN
     Route: 048
     Dates: start: 19990311, end: 19990711
  2. BEXTRA [Suspect]
     Route: 048
  3. VIOXX [Suspect]
     Indication: ARTHRITIS
     Route: 048
     Dates: start: 20000503, end: 20020201
  4. TEQUIN [Concomitant]
  5. VITAMINS [Concomitant]
  6. ASPIRIN [Concomitant]
  7. LIPITOR [Concomitant]

REACTIONS (1)
  - CEREBROVASCULAR ACCIDENT [None]
